FAERS Safety Report 8708914 (Version 2)
Quarter: 2013Q2

REPORT INFORMATION
  Report Type: Report from Study
  Country: CA (occurrence: CA)
  Receive Date: 20120806
  Receipt Date: 20130620
  Transmission Date: 20140414
  Serious: Yes (Other)
  Sender: FDA-Public Use
  Company Number: CA-GLAXOSMITHKLINE-A0987798A

PATIENT
  Age: 65 Year
  Sex: Male
  Weight: 79.5 kg

DRUGS (15)
  1. GSK2110183 [Suspect]
     Indication: CHRONIC LYMPHOCYTIC LEUKAEMIA
     Dosage: 125MG PER DAY
     Route: 048
     Dates: start: 20120507
  2. OFATUMUMAB [Suspect]
     Indication: CHRONIC LYMPHOCYTIC LEUKAEMIA
     Dates: start: 20120517, end: 20121003
  3. MULTIVITAMIN [Concomitant]
     Indication: SUPPLEMENTATION THERAPY
     Dosage: 1TAB PER DAY
     Route: 048
     Dates: start: 2011
  4. VITAMIN B12 [Concomitant]
     Indication: SUPPLEMENTATION THERAPY
     Dosage: 1TAB PER DAY
     Route: 048
     Dates: start: 2011
  5. ALLOPURINOL [Concomitant]
     Dosage: 300MG PER DAY
     Route: 048
     Dates: start: 201005
  6. PRBC [Concomitant]
     Indication: ANAEMIA
     Dosage: 2UNIT SINGLE DOSE
     Route: 042
     Dates: start: 201205
  7. MEPERIDINE [Concomitant]
     Indication: INFUSION RELATED REACTION
     Route: 042
     Dates: start: 201205
  8. SOLUCORTEF [Concomitant]
     Indication: INFUSION RELATED REACTION
     Dosage: 100MG SINGLE DOSE
     Route: 042
     Dates: start: 201205
  9. BENADRYL [Concomitant]
     Indication: INFUSION RELATED REACTION
     Dosage: 50MG SINGLE DOSE
     Route: 042
     Dates: start: 201205
  10. DEMEROL [Concomitant]
     Indication: INFUSION RELATED REACTION
     Dosage: 25MG SINGLE DOSE
     Route: 042
     Dates: start: 201205
  11. GRAVOL [Concomitant]
     Indication: INFUSION RELATED REACTION
     Dosage: 50MG SINGLE DOSE
     Route: 042
     Dates: start: 201205
  12. RANITIDINE [Concomitant]
     Indication: PROPHYLAXIS
     Dosage: 150MG TWICE PER DAY
     Route: 048
     Dates: start: 201205
  13. DECADRON [Concomitant]
     Indication: PROPHYLAXIS
     Dosage: 20MG PER DAY
     Route: 048
     Dates: start: 201205
  14. RITUXIMAB [Concomitant]
     Indication: CHRONIC LYMPHOCYTIC LEUKAEMIA
     Dates: start: 2010, end: 201204
  15. CHOP CHEMOTHERAPY [Concomitant]
     Indication: CHRONIC LYMPHOCYTIC LEUKAEMIA
     Dates: start: 2010, end: 201204

REACTIONS (1)
  - Squamous cell carcinoma [Not Recovered/Not Resolved]
